FAERS Safety Report 5631012-8 (Version None)
Quarter: 2008Q1

REPORT INFORMATION
  Report Type: 
  Country: None (occurrence: None)
  Receive Date: 20080131
  Receipt Date: 20071031
  Transmission Date: 20080703
  Serious: No
  Sender: FDA-Public Use
  Company Number: 163-21880-07110043

PATIENT
  Age: 76 Year
  Sex: Female

DRUGS (2)
  1. REVLIMID [Suspect]
     Indication: MULTIPLE MYELOMA
     Dosage: 25 MG, QD X 21 DAYS, 7.5 MG, 1 IN 2 D, ORAL
     Route: 048
     Dates: start: 20070822, end: 20071031
  2. REVLIMID [Suspect]
     Indication: MULTIPLE MYELOMA
     Dosage: 25 MG, QD X 21 DAYS, 7.5 MG, 1 IN 2 D, ORAL
     Route: 048
     Dates: start: 20071031

REACTIONS (1)
  - CREATININE RENAL CLEARANCE DECREASED [None]
